FAERS Safety Report 6877211-9 (Version None)
Quarter: 2010Q3

REPORT INFORMATION
  Report Type: 
  Country: None (occurrence: None)
  Receive Date: 20100727
  Receipt Date: 20091023
  Transmission Date: 20110219
  Serious: No
  Sender: FDA-Public Use
  Company Number: US-ABBOTT-05P-163-0308830-00

PATIENT
  Sex: Female
  Weight: 53.572 kg

DRUGS (2)
  1. SYNTHROID [Suspect]
     Indication: HYPERTHYROIDISM
     Route: 048
     Dates: start: 20050301
  2. SYNTHROID [Suspect]
     Route: 048
     Dates: start: 20050301

REACTIONS (4)
  - ABDOMINAL DISCOMFORT [None]
  - DIZZINESS [None]
  - HYPERHIDROSIS [None]
  - NAUSEA [None]
